FAERS Safety Report 23878976 (Version 1)
Quarter: 2024Q2

REPORT INFORMATION
  Report Type: Spontaneous
  Country: GB (occurrence: GB)
  Receive Date: 20240521
  Receipt Date: 20240521
  Transmission Date: 20240716
  Serious: Yes (Other)
  Sender: FDA-Public Use
  Company Number: None

PATIENT
  Age: 82 Year
  Sex: Female
  Weight: 64 kg

DRUGS (12)
  1. AMLODIPINE [Suspect]
     Active Substance: AMLODIPINE BESYLATE
     Route: 065
     Dates: start: 20240415, end: 20240507
  2. CIPROFLOXACIN [Concomitant]
     Active Substance: CIPROFLOXACIN
     Dosage: DROP
     Dates: start: 20240417, end: 20240429
  3. FUSIDIC ACID [Concomitant]
     Active Substance: FUSIDIC ACID
     Dosage: DROP INTO AFFECTED EYE(S)
     Dates: start: 20240405, end: 20240410
  4. CHLORAMPHENICOL [Concomitant]
     Active Substance: CHLORAMPHENICOL
     Dosage: APPLY
     Dates: start: 20240404, end: 20240409
  5. RAMIPRIL [Concomitant]
     Active Substance: RAMIPRIL
     Dates: start: 20240507
  6. CHLORHEXIDINE GLUCONATE [Concomitant]
     Active Substance: CHLORHEXIDINE GLUCONATE
     Dates: start: 20230504
  7. IBUPROFEN [Concomitant]
     Active Substance: IBUPROFEN
     Dosage: TIME INTERVAL: 0.33333333 DAYS: APPLY
     Dates: start: 20230807, end: 20240221
  8. MOVELAT [Concomitant]
     Dosage: TIME INTERVAL: 0.33333333 DAYS: APPLY
     Dates: start: 20240404, end: 20240409
  9. ALBUTEROL [Concomitant]
     Active Substance: ALBUTEROL
     Dosage: ONE OR TWO PUFFS TO BE INHALED FOUR TIMES A DAY...
     Dates: start: 20230504
  10. OILATUM [Concomitant]
     Dosage: APPLY AS NEEDED
     Dates: start: 20240304
  11. MICONAZOLE [Concomitant]
     Active Substance: MICONAZOLE
     Dosage: APPLY
     Dates: start: 20240425
  12. BECLOMETHASONE\FORMOTEROL [Concomitant]
     Active Substance: BECLOMETHASONE\FORMOTEROL
     Dosage: PUFFS
     Dates: start: 20231201

REACTIONS (2)
  - Joint swelling [Recovered/Resolved]
  - Peripheral swelling [Unknown]
